FAERS Safety Report 8415152-6 (Version None)
Quarter: 2012Q2

REPORT INFORMATION
  Report Type: 
  Country: None (occurrence: None)
  Receive Date: 20120606
  Receipt Date: 20120601
  Transmission Date: 20120825
  Serious: No
  Sender: FDA-Public Use
  Company Number: US-PFIZER INC-2012120306

PATIENT
  Sex: Female

DRUGS (1)
  1. TIKOSYN [Suspect]
     Dosage: UNK, 6 PILLS A DAY
     Route: 048

REACTIONS (3)
  - ASTHMA [None]
  - MALAISE [None]
  - ELECTROCARDIOGRAM ABNORMAL [None]
